FAERS Safety Report 13432543 (Version 1)
Quarter: 2017Q2

REPORT INFORMATION
  Report Type: Report from Study
  Country: CA (occurrence: CA)
  Receive Date: 20170412
  Receipt Date: 20170412
  Transmission Date: 20170830
  Serious: Yes (Other)
  Sender: FDA-Public Use
  Company Number: CA-TEVA-757119ACC

PATIENT
  Sex: Female

DRUGS (5)
  1. NITRAZEPAM [Concomitant]
     Active Substance: NITRAZEPAM
  2. COPAXONE [Suspect]
     Active Substance: GLATIRAMER ACETATE
     Indication: MULTIPLE SCLEROSIS
     Dosage: 20 MILLIGRAM/MILLILITERS DAILY;
     Route: 058
     Dates: start: 20150317
  3. OXAZEPAM. [Concomitant]
     Active Substance: OXAZEPAM
  4. VITAMIN D [Concomitant]
     Active Substance: CHOLECALCIFEROL
  5. GABAPENTIN. [Concomitant]
     Active Substance: GABAPENTIN

REACTIONS (1)
  - Acquired immunodeficiency syndrome [Unknown]
